FAERS Safety Report 18163976 (Version 2)
Quarter: 2020Q3

REPORT INFORMATION
  Report Type: Spontaneous
  Country: US (occurrence: US)
  Receive Date: 20200818
  Receipt Date: 20200818
  Transmission Date: 20201103
  Serious: Yes (Hospitalization)
  Sender: FDA-Public Use
  Company Number: US-OTSUKA-2019_023301

PATIENT
  Sex: Female
  Weight: 56.69 kg

DRUGS (15)
  1. ABILIFY [Suspect]
     Active Substance: ARIPIPRAZOLE
     Dosage: 10 MG, UNK
     Route: 065
  2. ABILIFY [Suspect]
     Active Substance: ARIPIPRAZOLE
     Dosage: 2.5 MG, UNK (DOSE REDUCE)
     Route: 065
  3. YASMIN [Suspect]
     Active Substance: DROSPIRENONE\ETHINYL ESTRADIOL
     Indication: ALOPECIA
     Dosage: UNK
     Route: 065
  4. GEODON [Suspect]
     Active Substance: ZIPRASIDONE HYDROCHLORIDE\ZIPRASIDONE MESYLATE
     Indication: CONTRACEPTION
  5. ROGAINE [Concomitant]
     Active Substance: MINOXIDIL
     Indication: PRODUCT USED FOR UNKNOWN INDICATION
     Dosage: UNK
     Route: 065
  6. ABILIFY [Suspect]
     Active Substance: ARIPIPRAZOLE
     Dosage: 5 MG, UNK
     Route: 065
  7. VRAYLAR [Suspect]
     Active Substance: CARIPRAZINE
     Indication: PRODUCT USED FOR UNKNOWN INDICATION
     Dosage: UNK
     Route: 065
  8. INVEGA [Concomitant]
     Active Substance: PALIPERIDONE
     Indication: PRODUCT USED FOR UNKNOWN INDICATION
     Dosage: TITRATED UP TO 9MG
     Route: 065
  9. ABILIFY [Suspect]
     Active Substance: ARIPIPRAZOLE
     Dosage: 5 MG, UNK (TAPERDED DOWN)
     Route: 065
  10. YASMIN [Suspect]
     Active Substance: DROSPIRENONE\ETHINYL ESTRADIOL
     Indication: CONTRACEPTION
  11. FANAPT [Concomitant]
     Active Substance: ILOPERIDONE
     Indication: PRODUCT USED FOR UNKNOWN INDICATION
     Dosage: UNK
     Route: 065
  12. SYMBYAX [Concomitant]
     Active Substance: FLUOXETINE HYDROCHLORIDE\OLANZAPINE
     Indication: PRODUCT USED FOR UNKNOWN INDICATION
     Dosage: UNK
     Route: 065
  13. ABILIFY [Suspect]
     Active Substance: ARIPIPRAZOLE
     Dosage: 7.5 MG, UNK
     Route: 065
  14. GEODON [Suspect]
     Active Substance: ZIPRASIDONE HYDROCHLORIDE\ZIPRASIDONE MESYLATE
     Indication: SCHIZOAFFECTIVE DISORDER
     Dosage: UNK
     Route: 065
  15. ABILIFY [Suspect]
     Active Substance: ARIPIPRAZOLE
     Indication: SCHIZOAFFECTIVE DISORDER
     Dosage: 2.5 MG, UNK
     Route: 065

REACTIONS (26)
  - Weight increased [Not Recovered/Not Resolved]
  - Periodontal disease [Not Recovered/Not Resolved]
  - Compulsive shopping [Not Recovered/Not Resolved]
  - Constipation [Not Recovered/Not Resolved]
  - Therapy cessation [Unknown]
  - Polycystic ovaries [Recovered/Resolved]
  - Anaemia [Unknown]
  - Product use in unapproved indication [Unknown]
  - Stress [Unknown]
  - Limb discomfort [Unknown]
  - Peripheral swelling [Unknown]
  - Tremor [Recovered/Resolved]
  - Condition aggravated [Not Recovered/Not Resolved]
  - Therapeutic product effect incomplete [Unknown]
  - Tooth disorder [Unknown]
  - Liver disorder [Unknown]
  - Feeling abnormal [Unknown]
  - Pain in extremity [Not Recovered/Not Resolved]
  - Vision blurred [Unknown]
  - Expired product administered [Unknown]
  - Blood testosterone increased [Unknown]
  - Blister [Not Recovered/Not Resolved]
  - Behaviour disorder [Unknown]
  - Binge eating [Not Recovered/Not Resolved]
  - Alopecia [Not Recovered/Not Resolved]
  - Loss of employment [Unknown]

NARRATIVE: CASE EVENT DATE: 2005
